FAERS Safety Report 5274286-8 (Version None)
Quarter: 2007Q1

REPORT INFORMATION
  Report Type: 
  Country: None (occurrence: None)
  Receive Date: 20070323
  Receipt Date: 20070312
  Transmission Date: 20070707
  Serious: Yes (Hospitalization, Other)
  Sender: FDA-Public Use
  Company Number: GB-JNJFOC-20070302686

PATIENT
  Sex: Male
  Weight: 61 kg

DRUGS (10)
  1. REMICADE [Suspect]
     Indication: RHEUMATOID ARTHRITIS
     Route: 042
  2. PREDNISOLONE [Concomitant]
  3. FOLIC ACID [Concomitant]
  4. CALCITRIOL [Concomitant]
  5. CLOPIDOGREL [Concomitant]
  6. METHOTREXATE [Concomitant]
  7. ASPIRIN [Concomitant]
  8. ATORVASTATIN CALCIUM [Concomitant]
  9. CO-PROXAMOL [Concomitant]
  10. RANITIDINE [Concomitant]

REACTIONS (1)
  - INGUINAL HERNIA [None]
